FAERS Safety Report 8027512-6 (Version None)
Quarter: 2012Q1

REPORT INFORMATION
  Report Type: 
  Country: None (occurrence: None)
  Receive Date: 20120106
  Receipt Date: 20120103
  Transmission Date: 20120608
  Serious: Yes (Other)
  Sender: FDA-Public Use
  Company Number: US-B.I. PHARMACEUTICALS,INC./RIDGEFIELD-2012-BP-00202BP

PATIENT
  Sex: Female
  Weight: 65 kg

DRUGS (2)
  1. RIVAROXABAN [Suspect]
     Indication: ANTICOAGULANT THERAPY
     Dosage: 15 MG
     Route: 048
     Dates: start: 20111220
  2. PRADAXA [Suspect]
     Indication: ANTICOAGULANT THERAPY

REACTIONS (1)
  - VAGINAL HAEMORRHAGE [None]
